FAERS Safety Report 10573253 (Version 2)
Quarter: 2014Q4

REPORT INFORMATION
  Report Type: Spontaneous
  Country: BR (occurrence: BR)
  Receive Date: 20141110
  Receipt Date: 20141114
  Transmission Date: 20150529
  Serious: Yes (Hospitalization, Other)
  Sender: FDA-Public Use
  Company Number: BR-SA-2014SA151843

PATIENT
  Sex: Male

DRUGS (3)
  1. SOLOSTAR [Concomitant]
     Active Substance: DEVICE
  2. LANTUS SOLOSTAR [Suspect]
     Active Substance: INSULIN GLARGINE
     Indication: DIABETES MELLITUS
     Route: 065
  3. DEVICE NOS [Concomitant]
     Active Substance: DEVICE

REACTIONS (3)
  - Coagulopathy [Recovering/Resolving]
  - Hospitalisation [Unknown]
  - Aneurysm repair [Recovering/Resolving]

NARRATIVE: CASE EVENT DATE: 20141103
